FAERS Safety Report 8416431-9 (Version None)
Quarter: 2012Q2

REPORT INFORMATION
  Report Type: 
  Country: None (occurrence: None)
  Receive Date: 20120606
  Receipt Date: 20120529
  Transmission Date: 20120825
  Serious: Yes (Other)
  Sender: FDA-Public Use
  Company Number: US-BAYER-200914023NA

PATIENT
  Age: 47 Year
  Sex: Female
  Weight: 56 kg

DRUGS (6)
  1. SORAFENIB (RAF KINASE INHIBITOR) [Suspect]
     Indication: BREAST CANCER METASTATIC
     Route: 048
     Dates: start: 20090107, end: 20090218
  2. GEMZAR [Suspect]
     Indication: BREAST CANCER METASTATIC
     Dosage: DAYS 1 AND 8 OF EACH 21 DAY CYCLE (1670 MG, 2 IN 3 WK)
     Route: 042
     Dates: start: 20090107, end: 20090218
  3. CALCIUM D3 [Concomitant]
     Route: 048
  4. BISMUTH SUBSALICYLATE [Concomitant]
     Dosage: 2 TSP
     Route: 048
  5. GEMZAR [Suspect]
     Dosage: DAYS 1 AND 8 OF EACH 21 DAY CYCLE (1670 MG, 2 IN 3 WK)
     Route: 042
     Dates: start: 20090225
  6. M.V.I. [Concomitant]
     Route: 048

REACTIONS (1)
  - DEEP VEIN THROMBOSIS [None]
